FAERS Safety Report 24126493 (Version 3)
Quarter: 2024Q4

REPORT INFORMATION
  Report Type: Spontaneous
  Country: US (occurrence: US)
  Receive Date: 20240723
  Receipt Date: 20241230
  Transmission Date: 20250114
  Serious: No
  Sender: PFIZER
  Company Number: US-PFIZER INC-PV202400095576

PATIENT
  Age: 69 Year
  Sex: Female

DRUGS (5)
  1. TUKYSA [Interacting]
     Active Substance: TUCATINIB
     Indication: Breast cancer metastatic
     Dosage: TWO TABLETS TWICE A DAY
  2. TUKYSA [Interacting]
     Active Substance: TUCATINIB
     Dosage: 300MGS 2X A DAY
     Route: 048
  3. TRAMADOL [Interacting]
     Active Substance: TRAMADOL
     Dosage: ONCE EVERY 3 TO 4 DAYS AS NEEDED
  4. CAPECITABINE [Concomitant]
     Active Substance: CAPECITABINE
     Dosage: UNK
  5. TRASTUZUMAB [Concomitant]
     Active Substance: TRASTUZUMAB
     Dosage: UNK

REACTIONS (1)
  - Drug interaction [Unknown]
